FAERS Safety Report 16839194 (Version 1)
Quarter: 2019Q3

REPORT INFORMATION
  Report Type: Spontaneous
  Country: US (occurrence: US)
  Receive Date: 20190923
  Receipt Date: 20190923
  Transmission Date: 20191005
  Serious: Yes (Hospitalization)
  Sender: FDA-Public Use
  Company Number: US-SA-2019SA261026

PATIENT

DRUGS (2)
  1. TOUJEO [Suspect]
     Active Substance: INSULIN GLARGINE
     Route: 065
  2. NOVOLOG [Suspect]
     Active Substance: INSULIN ASPART

REACTIONS (6)
  - Fall [Unknown]
  - Confusional state [Unknown]
  - Memory impairment [Unknown]
  - Product dose omission [Unknown]
  - Injury [Unknown]
  - Blood glucose increased [Unknown]
